FAERS Safety Report 8480761-5 (Version None)
Quarter: 2012Q2

REPORT INFORMATION
  Report Type: 
  Country: None (occurrence: None)
  Receive Date: 20120620
  Receipt Date: 20120613
  Transmission Date: 20120825
  Serious: Yes (Other)
  Sender: FDA-Public Use
  Company Number: 2009SP000291

PATIENT
  Age: 37 Year
  Sex: Male
  Weight: 65 kg

DRUGS (7)
  1. DEPAKENE [Concomitant]
  2. RAMELTEON [Concomitant]
  3. TEMODAL [Suspect]
     Indication: ANAPLASTIC ASTROCYTOMA
     Dosage: 75 MG/M2; QD; PO, 150 MG/M2;QD; PO
     Route: 048
     Dates: start: 20070216, end: 20070326
  4. TEMODAL [Suspect]
     Indication: ANAPLASTIC ASTROCYTOMA
     Dosage: 75 MG/M2; QD; PO, 150 MG/M2;QD; PO
     Route: 048
     Dates: start: 20101130, end: 20101204
  5. PRIMPERAN TAB [Concomitant]
  6. CEFDINIR [Concomitant]
  7. FAMOTIDINE [Concomitant]

REACTIONS (5)
  - EXTRADURAL ABSCESS [None]
  - ANAPLASTIC ASTROCYTOMA [None]
  - ECONOMIC PROBLEM [None]
  - TREATMENT NONCOMPLIANCE [None]
  - NEOPLASM RECURRENCE [None]
